FAERS Safety Report 7033743-4 (Version None)
Quarter: 2010Q4

REPORT INFORMATION
  Report Type: 
  Country: None (occurrence: None)
  Receive Date: 20101007
  Receipt Date: 20100921
  Transmission Date: 20110411
  Serious: Yes (Other)
  Sender: FDA-Public Use
  Company Number: PHHY2010BR65831

PATIENT
  Age: 48 Year
  Sex: Female
  Weight: 82 kg

DRUGS (7)
  1. EXFORGE [Suspect]
  2. HYDROCHLOROTHIAZIDE [Suspect]
  3. APRESOLINE [Suspect]
  4. ALDAZIDE [Concomitant]
  5. ATENOLOL [Concomitant]
  6. CAPTOPRIL [Concomitant]
  7. SIMVASTATIN [Concomitant]

REACTIONS (5)
  - CARDIOVASCULAR INSUFFICIENCY [None]
  - DILATATION VENTRICULAR [None]
  - HYPERTENSION [None]
  - LEFT VENTRICULAR DYSFUNCTION [None]
  - MICROALBUMINURIA [None]
